FAERS Safety Report 25659722 (Version 2)
Quarter: 2025Q3

REPORT INFORMATION
  Report Type: Spontaneous
  Country: US (occurrence: US)
  Receive Date: 20250808
  Receipt Date: 20250815
  Transmission Date: 20251020
  Serious: Yes (Other)
  Sender: PACIRA
  Company Number: US-ORG100016242-2025000304

PATIENT

DRUGS (3)
  1. EXPAREL [Suspect]
     Active Substance: BUPIVACAINE
     Indication: Transversus abdominis plane block
     Route: 050
  2. BUPIVACAINE [Suspect]
     Active Substance: BUPIVACAINE
     Indication: Transversus abdominis plane block
     Route: 050
  3. SALINE [Suspect]
     Active Substance: SODIUM CHLORIDE
     Indication: Transversus abdominis plane block
     Route: 050

REACTIONS (7)
  - Skin flap necrosis [Unknown]
  - Graft thrombosis [Unknown]
  - Graft loss [Unknown]
  - Postoperative wound infection [Unknown]
  - Postoperative wound complication [Unknown]
  - Abdominal hernia [Unknown]
  - Incision site seroma [Unknown]
